FAERS Safety Report 17705109 (Version 1)
Quarter: 2020Q2

REPORT INFORMATION
  Report Type: Spontaneous
  Country: US (occurrence: US)
  Receive Date: 20200424
  Receipt Date: 20200424
  Transmission Date: 20200714
  Serious: No
  Sender: FDA-Public Use
  Company Number: US-PFIZER INC-2020164323

PATIENT
  Age: 80 Year
  Sex: Female
  Weight: 67.13 kg

DRUGS (1)
  1. XELJANZ XR [Suspect]
     Active Substance: TOFACITINIB CITRATE
     Indication: ARTHRITIS
     Dosage: 22 MG, 1X/DAY(TWO 11MG TABLETS BY MOUTH ONCE A DAY)
     Route: 048

REACTIONS (2)
  - Off label use [Unknown]
  - Pain [Not Recovered/Not Resolved]

NARRATIVE: CASE EVENT DATE: 20200415
